FAERS Safety Report 5614461-3 (Version None)
Quarter: 2008Q1

REPORT INFORMATION
  Report Type: 
  Country: None (occurrence: None)
  Receive Date: 20080130
  Receipt Date: 20080121
  Transmission Date: 20080703
  Serious: Yes (Hospitalization)
  Sender: FDA-Public Use
  Company Number: TPA2008A00107

PATIENT
  Age: 51 Year
  Sex: Female

DRUGS (1)
  1. ROZEREM [Suspect]
     Dosage: PER ORAL
     Route: 048

REACTIONS (6)
  - ABNORMAL DREAMS [None]
  - DEPRESSION [None]
  - DISORIENTATION [None]
  - DYSARTHRIA [None]
  - FEELING ABNORMAL [None]
  - HEADACHE [None]
